FAERS Safety Report 7378996-8 (Version None)
Quarter: 2011Q1

REPORT INFORMATION
  Report Type: 
  Country: None (occurrence: None)
  Receive Date: 20110324
  Receipt Date: 20110324
  Transmission Date: 20110831
  Serious: Yes (Other)
  Sender: FDA-Public Use
  Company Number: None

PATIENT
  Age: 50 Year
  Sex: Female
  Weight: 52.1637 kg

DRUGS (1)
  1. LATISSE [Suspect]
     Indication: GROWTH OF EYELASHES
     Dosage: 1 DROP ON EYELASH LINE ONCE PER DAY TOP
     Route: 061
     Dates: start: 20110317, end: 20110318

REACTIONS (6)
  - ERYTHEMA [None]
  - OEDEMA PERIPHERAL [None]
  - PRURITUS [None]
  - EYELASH DISCOLOURATION [None]
  - EYELID OEDEMA [None]
  - URTICARIA [None]
